FAERS Safety Report 11366065 (Version 1)
Quarter: 2015Q3

REPORT INFORMATION
  Report Type: Spontaneous
  Country: US (occurrence: US)
  Receive Date: 20150811
  Receipt Date: 20150811
  Transmission Date: 20151125
  Serious: Yes (Other)
  Sender: FDA-Public Use
  Company Number: US-TEVA-584697USA

PATIENT
  Sex: Female
  Weight: 55.39 kg

DRUGS (3)
  1. FENTORA [Suspect]
     Active Substance: FENTANYL CITRATE
     Indication: CANCER PAIN
     Route: 065
     Dates: start: 2010
  2. OXYCONTIN [Concomitant]
     Active Substance: OXYCODONE HYDROCHLORIDE
     Indication: PAIN
  3. FENTORA [Suspect]
     Active Substance: FENTANYL CITRATE
     Dosage: 4000 MICROGRAM DAILY; 10 TABLETS PER DAY

REACTIONS (2)
  - Intentional product misuse [Unknown]
  - Drug dependence [Not Recovered/Not Resolved]
